FAERS Safety Report 15562662 (Version 1)
Quarter: 2018Q4

REPORT INFORMATION
  Report Type: Spontaneous
  Country: DK (occurrence: DK)
  Receive Date: 20181029
  Receipt Date: 20181029
  Transmission Date: 20190205
  Serious: Yes (Hospitalization)
  Sender: FDA-Public Use
  Company Number: DK-ALLERGAN-1832362US

PATIENT
  Age: 46 Year
  Sex: Female

DRUGS (2)
  1. ZEBINIX [Interacting]
     Active Substance: ESLICARBAZEPINE ACETATE
     Indication: PARTIAL SEIZURES
     Dosage: 1200 MG, QD
     Route: 065
     Dates: start: 201211
  2. CITALOPRAM HYDROBROMIDE - BP [Suspect]
     Active Substance: CITALOPRAM HYDROBROMIDE
     Indication: PRODUCT USED FOR UNKNOWN INDICATION
     Dosage: 10 MG, QD
     Route: 065
     Dates: start: 201309

REACTIONS (3)
  - Drug interaction [Unknown]
  - Hyponatraemic seizure [Recovered/Resolved]
  - Hyponatraemia [Recovered/Resolved]
